FAERS Safety Report 7003914-1 (Version None)
Quarter: 2010Q3

REPORT INFORMATION
  Report Type: 
  Country: None (occurrence: None)
  Receive Date: 20100920
  Receipt Date: 20091215
  Transmission Date: 20110219
  Serious: No
  Sender: FDA-Public Use
  Company Number: US-WYE-H12656109

PATIENT
  Sex: Male
  Weight: 77.18 kg

DRUGS (2)
  1. PROTONIX [Suspect]
     Indication: GASTROOESOPHAGEAL REFLUX DISEASE
     Route: 048
     Dates: start: 20080101
  2. DILANTIN [Concomitant]

REACTIONS (1)
  - ABDOMINAL DISTENSION [None]
